FAERS Safety Report 5487507-3 (Version None)
Quarter: 2007Q4

REPORT INFORMATION
  Report Type: 
  Country: None (occurrence: None)
  Receive Date: 20071016
  Receipt Date: 20071004
  Transmission Date: 20080405
  Serious: Yes (Other)
  Sender: FDA-Public Use
  Company Number: CA-PFIZER INC-2007084063

PATIENT

DRUGS (1)
  1. CYCLOKAPRON (IV) [Suspect]

REACTIONS (1)
  - TRANSIENT ISCHAEMIC ATTACK [None]
